FAERS Safety Report 8602194-0 (Version None)
Quarter: 2012Q3

REPORT INFORMATION
  Report Type: 
  Country: None (occurrence: None)
  Receive Date: 20120817
  Receipt Date: 20120816
  Transmission Date: 20120928
  Serious: Yes (Other)
  Sender: FDA-Public Use
  Company Number: JP-PFIZER INC-2012193839

PATIENT

DRUGS (1)
  1. UNASYN [Suspect]
     Indication: PROPHYLAXIS
     Dosage: UNK

REACTIONS (1)
  - ENTEROCOLITIS HAEMORRHAGIC [None]
